FAERS Safety Report 7146188-3 (Version None)
Quarter: 2010Q4

REPORT INFORMATION
  Report Type: 
  Country: None (occurrence: None)
  Receive Date: 20101208
  Receipt Date: 20101203
  Transmission Date: 20110411
  Serious: No
  Sender: FDA-Public Use
  Company Number: PHHO2010AU18061

PATIENT

DRUGS (3)
  1. STI571/CGP57148B T35717+TAB [Suspect]
     Indication: CHRONIC MYELOID LEUKAEMIA
     Dosage: 600MG DAILY DOSE
     Route: 048
     Dates: start: 20101012, end: 20101027
  2. STI571/CGP57148B T35717+TAB [Suspect]
     Dosage: 400MG DAILY
     Route: 048
     Dates: start: 20101109
  3. STI571/CGP57148B T35717+TAB [Suspect]
     Dosage: UNK
     Route: 048
     Dates: start: 20101126

REACTIONS (2)
  - BLOOD AMYLASE INCREASED [None]
  - LIPASE INCREASED [None]
